FAERS Safety Report 7405109-6 (Version None)
Quarter: 2011Q1

REPORT INFORMATION
  Report Type: 
  Country: None (occurrence: None)
  Receive Date: 20110331
  Receipt Date: 20110321
  Transmission Date: 20110831
  Serious: Yes (Hospitalization)
  Sender: FDA-Public Use
  Company Number: 2011MA002915

PATIENT
  Age: 64 Year
  Sex: Female

DRUGS (5)
  1. FOSFOCINA (FOSFOMYCIN SODIUM) [Suspect]
     Indication: INTERVERTEBRAL DISCITIS
     Dosage: 12 GM;QD;IV
     Route: 042
     Dates: start: 20101123, end: 20110107
  2. VENLAFAXINE HCL [Suspect]
     Indication: PRODUCT USED FOR UNKNOWN INDICATION
     Dosage: 50 MG;QD:PO
     Route: 048
     Dates: start: 20101119, end: 20110107
  3. FLUCONAZOLE [Suspect]
     Indication: INTERVERTEBRAL DISCITIS
     Dosage: 200 MG;QD;PO
     Route: 048
     Dates: start: 20101124, end: 20110107
  4. CIPROFLOXACIN [Suspect]
     Indication: INTERVERTEBRAL DISCITIS
     Dosage: 2.25 MG; QD;PO
     Route: 048
     Dates: start: 20101129, end: 20110107
  5. MEROPENEM [Suspect]
     Indication: INTERVERTEBRAL DISCITIS
     Dosage: 6 GM;QD;IV
     Route: 042
     Dates: start: 20101119, end: 20110107

REACTIONS (2)
  - ACUTE GENERALISED EXANTHEMATOUS PUSTULOSIS [None]
  - RENAL FAILURE ACUTE [None]
